FAERS Safety Report 20283118 (Version 2)
Quarter: 2025Q3

REPORT INFORMATION
  Report Type: Spontaneous
  Country: US (occurrence: US)
  Receive Date: 20220103
  Receipt Date: 20250725
  Transmission Date: 20251021
  Serious: Yes (Disabling, Other)
  Sender: PURDUE
  Company Number: US-PURDUE-USA-2020-0276068

PATIENT
  Sex: Male

DRUGS (1)
  1. OXYCONTIN [Suspect]
     Active Substance: OXYCODONE HYDROCHLORIDE
     Indication: Road traffic accident
     Route: 048

REACTIONS (6)
  - Drug dependence [Unknown]
  - Drug abuse [Unknown]
  - Stress [Unknown]
  - Emotional distress [Unknown]
  - General physical health deterioration [Unknown]
  - Adverse event [Unknown]
